FAERS Safety Report 4653232-1 (Version None)
Quarter: 2005Q2

REPORT INFORMATION
  Report Type: 
  Country: None (occurrence: None)
  Receive Date: 20050505
  Receipt Date: 20040624
  Transmission Date: 20051028
  Serious: Yes (Hospitalization, Other)
  Sender: FDA-Public Use
  Company Number: NL-AMGEN-US081414

PATIENT
  Sex: Male

DRUGS (1)
  1. ETANERCEPT [Suspect]
     Indication: ANKYLOSING SPONDYLITIS
     Route: 058
     Dates: start: 20020920, end: 20040615

REACTIONS (11)
  - ANAL FISTULA [None]
  - BUTTOCK PAIN [None]
  - CROHN'S DISEASE [None]
  - ERYTHEMA [None]
  - ESCHERICHIA INFECTION [None]
  - FISTULA [None]
  - OPEN WOUND [None]
  - PALPITATIONS [None]
  - PILONIDAL CYST [None]
  - PROTEUS INFECTION [None]
  - STAPHYLOCOCCAL ABSCESS [None]
